FAERS Safety Report 24679062 (Version 5)
Quarter: 2025Q3

REPORT INFORMATION
  Report Type: Spontaneous
  Country: JP (occurrence: JP)
  Receive Date: 20241129
  Receipt Date: 20250809
  Transmission Date: 20251021
  Serious: Yes (Life-Threatening, Hospitalization)
  Sender: ALEXION PHARMACEUTICALS
  Company Number: JP-ASTRAZENECA-240132154_013120_P_1

PATIENT
  Age: 72 Year
  Sex: Male
  Weight: 72 kg

DRUGS (45)
  1. IMFINZI [Suspect]
     Active Substance: DURVALUMAB
     Indication: Bile duct cancer
     Dosage: 1500 MILLIGRAM, Q3W
     Dates: start: 20240117, end: 20240617
  2. IMFINZI [Suspect]
     Active Substance: DURVALUMAB
     Dosage: 1500 MILLIGRAM, Q4W
     Dates: start: 20240708, end: 20240902
  3. GEMCITABINE [Suspect]
     Active Substance: GEMCITABINE
     Indication: Bile duct cancer
     Dosage: THE DOSE WAS REDUCED BY ONE STEP
     Route: 065
     Dates: start: 20231221, end: 20240930
  4. GEMCITABINE [Suspect]
     Active Substance: GEMCITABINE
     Indication: Bile duct cancer
  5. CISPLATIN [Concomitant]
     Active Substance: CISPLATIN
     Indication: Bile duct cancer
     Route: 065
  6. CISPLATIN [Concomitant]
     Active Substance: CISPLATIN
     Indication: Bile duct cancer
  7. ROSUVASTATIN [Concomitant]
     Active Substance: ROSUVASTATIN
     Dosage: AFTER BRAKFAST
  8. ROSUVASTATIN [Concomitant]
     Active Substance: ROSUVASTATIN
     Dosage: AFTER BRAKFAST
  9. ROSUVASTATIN [Concomitant]
     Active Substance: ROSUVASTATIN
     Dosage: AFTER BRAKFAST
  10. URSO [Concomitant]
     Active Substance: URSODIOL
     Dosage: AFTER EVERY MEAL
     Dates: start: 20231127
  11. LANSOPRAZOLE [Concomitant]
     Active Substance: LANSOPRAZOLE
     Indication: Prophylaxis against gastrointestinal ulcer
     Dosage: 15 MILLIGRAM, QD
     Dates: start: 20231220
  12. VOGLIBOSE [Concomitant]
     Active Substance: VOGLIBOSE
     Indication: Diabetes mellitus
     Dosage: 0.2 MILLIGRAM, TID
  13. VOGLIBOSE [Concomitant]
     Active Substance: VOGLIBOSE
     Dosage: 0.2 MILLIGRAM, TID
  14. VOGLIBOSE [Concomitant]
     Active Substance: VOGLIBOSE
     Dosage: 0.2 MILLIGRAM, TID
  15. MAGNESIUM OXIDE [Concomitant]
     Active Substance: MAGNESIUM OXIDE
     Indication: Constipation prophylaxis
     Dosage: 660 MILLIGRAM, TID
  16. MAGNESIUM OXIDE [Concomitant]
     Active Substance: MAGNESIUM OXIDE
     Dosage: 660 MILLIGRAM, TID
  17. MAGNESIUM OXIDE [Concomitant]
     Active Substance: MAGNESIUM OXIDE
     Dosage: 660 MILLIGRAM, TID
  18. CANDESARTAN [Concomitant]
     Active Substance: CANDESARTAN
     Indication: Hypertension
     Dosage: 4 MILLIGRAM, QD
  19. CANDESARTAN [Concomitant]
     Active Substance: CANDESARTAN
     Dosage: 4 MILLIGRAM, QD
  20. CANDESARTAN [Concomitant]
     Active Substance: CANDESARTAN
     Dosage: 4 MILLIGRAM, QD
  21. NIFEDIPINE [Concomitant]
     Active Substance: NIFEDIPINE
     Indication: Hypertension
     Dosage: 20 MILLIGRAM, QD
  22. NIFEDIPINE [Concomitant]
     Active Substance: NIFEDIPINE
     Dosage: 20 MILLIGRAM, QD
  23. NIFEDIPINE [Concomitant]
     Active Substance: NIFEDIPINE
     Dosage: 20 MILLIGRAM, QD
  24. LASIX [Concomitant]
     Active Substance: FUROSEMIDE
     Indication: Hypertension
     Dosage: 10 MILLIGRAM, QD
     Dates: start: 20240226
  25. CALONAL [Concomitant]
     Active Substance: ACETAMINOPHEN
     Indication: Bile duct cancer
     Dosage: 400 MILLIGRAM, TID
  26. CALONAL [Concomitant]
     Active Substance: ACETAMINOPHEN
     Dosage: 400 MILLIGRAM, TID
  27. CALONAL [Concomitant]
     Active Substance: ACETAMINOPHEN
     Dosage: 400 MILLIGRAM, TID
  28. CANDESARTAN CILEXETIL [Concomitant]
     Active Substance: CANDESARTAN CILEXETIL
     Dosage: AFTER BRAKFAST
  29. CANDESARTAN CILEXETIL [Concomitant]
     Active Substance: CANDESARTAN CILEXETIL
     Dosage: AFTER BRAKFAST
  30. CANDESARTAN CILEXETIL [Concomitant]
     Active Substance: CANDESARTAN CILEXETIL
     Dosage: AFTER BRAKFAST
  31. FEBUXOSTAT [Concomitant]
     Active Substance: FEBUXOSTAT
     Dosage: AFTER BRAKFAST
  32. FEBUXOSTAT [Concomitant]
     Active Substance: FEBUXOSTAT
     Dosage: AFTER BRAKFAST
  33. FEBUXOSTAT [Concomitant]
     Active Substance: FEBUXOSTAT
     Dosage: AFTER BRAKFAST
  34. VOGLIBOSE [Concomitant]
     Active Substance: VOGLIBOSE
     Dosage: BEFORE EVERY MEAL
  35. VOGLIBOSE [Concomitant]
     Active Substance: VOGLIBOSE
     Dosage: BEFORE EVERY MEAL
  36. VOGLIBOSE [Concomitant]
     Active Substance: VOGLIBOSE
     Dosage: BEFORE EVERY MEAL
  37. GASTER [Concomitant]
     Active Substance: FAMOTIDINE
     Dosage: AFTER BRAKFAST AND EVENING MEAL
  38. GASTER [Concomitant]
     Active Substance: FAMOTIDINE
     Dosage: AFTER BRAKFAST AND EVENING MEAL
  39. GASTER [Concomitant]
     Active Substance: FAMOTIDINE
     Dosage: AFTER BRAKFAST AND EVENING MEAL
  40. REBAMIPIDE [Concomitant]
     Active Substance: REBAMIPIDE
     Dosage: AFTER EVERY MEAL
  41. REBAMIPIDE [Concomitant]
     Active Substance: REBAMIPIDE
     Dosage: AFTER EVERY MEAL
  42. REBAMIPIDE [Concomitant]
     Active Substance: REBAMIPIDE
     Dosage: AFTER EVERY MEAL
  43. MAGNESIUM OXIDE [Concomitant]
     Active Substance: MAGNESIUM OXIDE
     Dosage: AFTER EVERY MEAL
  44. MAGNESIUM OXIDE [Concomitant]
     Active Substance: MAGNESIUM OXIDE
     Dosage: AFTER EVERY MEAL
  45. MAGNESIUM OXIDE [Concomitant]
     Active Substance: MAGNESIUM OXIDE
     Dosage: AFTER EVERY MEAL

REACTIONS (3)
  - Interstitial lung disease [Recovering/Resolving]
  - Pneumonia bacterial [Recovered/Resolved]
  - Hepatic function abnormal [Not Recovered/Not Resolved]

NARRATIVE: CASE EVENT DATE: 20240701
